FAERS Safety Report 7611302-X (Version None)
Quarter: 2011Q3

REPORT INFORMATION
  Report Type: 
  Country: None (occurrence: None)
  Receive Date: 20110715
  Receipt Date: 20110711
  Transmission Date: 20111222
  Serious: Yes (Hospitalization)
  Sender: FDA-Public Use
  Company Number: US-B.I. PHARMACEUTICALS,INC./RIDGEFIELD-2011-BP-17158BP

PATIENT
  Age: 86 Year
  Sex: Female

DRUGS (9)
  1. NEXIUM [Concomitant]
  2. MAGOXIDE [Concomitant]
     Indication: VITAMIN SUPPLEMENTATION
  3. LOVASTATIN [Concomitant]
     Indication: BLOOD CHOLESTEROL INCREASED
  4. ASPIRIN [Concomitant]
     Dosage: 81 MG
  5. CALCIUM WITH VITAMIN D [Concomitant]
     Indication: VITAMIN SUPPLEMENTATION
  6. SOTALOL HCL [Concomitant]
     Indication: ATRIAL FIBRILLATION
  7. PRADAXA [Suspect]
     Indication: ATRIAL FIBRILLATION
     Dosage: 300 MG
     Route: 048
     Dates: start: 20110608
  8. MULTI-VITAMIN [Concomitant]
     Indication: VITAMIN SUPPLEMENTATION
  9. LOPRESSOR [Concomitant]
     Indication: HYPERTENSION

REACTIONS (1)
  - GASTROINTESTINAL HAEMORRHAGE [None]
